FAERS Safety Report 16750152 (Version 1)
Quarter: 2019Q3

REPORT INFORMATION
  Report Type: Spontaneous
  Country: US (occurrence: US)
  Receive Date: 20190828
  Receipt Date: 20190828
  Transmission Date: 20191005
  Serious: No
  Sender: FDA-Public Use
  Company Number: US-PFIZER INC-2019369768

PATIENT
  Age: 69 Year
  Sex: Female

DRUGS (9)
  1. MEPERIDINE HCL [Suspect]
     Active Substance: MEPERIDINE HYDROCHLORIDE
     Dosage: UNK
  2. CODEINE [Suspect]
     Active Substance: CODEINE
     Dosage: UNK
  3. ASPIRIN. [Suspect]
     Active Substance: ASPIRIN
     Dosage: UNK
  4. NEOMYCIN SULFATE. [Suspect]
     Active Substance: NEOMYCIN SULFATE
     Dosage: UNK
  5. IODINE. [Suspect]
     Active Substance: IODINE
     Dosage: UNK
  6. AMOXICILLIN TRIHYDRATE AND CLAVULANATE POTASSIUM [Suspect]
     Active Substance: AMOXICILLIN\CLAVULANATE POTASSIUM
     Dosage: UNK
  7. CEPHALEXIN HCL [Suspect]
     Active Substance: CEPHALEXIN HYDROCHLORIDE
     Dosage: UNK
  8. NIACIN. [Suspect]
     Active Substance: NIACIN
     Dosage: UNK
  9. SIMVASTATIN. [Suspect]
     Active Substance: SIMVASTATIN
     Dosage: UNK

REACTIONS (1)
  - Drug hypersensitivity [Not Recovered/Not Resolved]
